FAERS Safety Report 8198681-2 (Version None)
Quarter: 2012Q1

REPORT INFORMATION
  Report Type: 
  Country: None (occurrence: None)
  Receive Date: 20120309
  Receipt Date: 20120228
  Transmission Date: 20120608
  Serious: Yes (Other)
  Sender: FDA-Public Use
  Company Number: FR-JNJFOC-20120301433

PATIENT
  Age: 37 Year
  Sex: Male

DRUGS (3)
  1. ADALIMUMAB [Suspect]
     Indication: RHEUMATOID ARTHRITIS
     Route: 065
  2. REMICADE [Suspect]
     Indication: RHEUMATOID ARTHRITIS
     Dosage: TREATMENT DURATION WAS FOR 50 WEEKS
     Route: 042
  3. METHOTREXATE [Concomitant]
     Route: 065

REACTIONS (2)
  - HERPES SIMPLEX [None]
  - HERPES ZOSTER [None]
